FAERS Safety Report 6123290-6 (Version None)
Quarter: 2009Q1

REPORT INFORMATION
  Report Type: 
  Country: None (occurrence: None)
  Receive Date: 20090318
  Receipt Date: 20090306
  Transmission Date: 20090719
  Serious: Yes (Other)
  Sender: FDA-Public Use
  Company Number: BR-ROCHE-619723

PATIENT
  Sex: Female
  Weight: 64 kg

DRUGS (5)
  1. ORLISTAT [Suspect]
     Indication: WEIGHT CONTROL
     Dosage: DOSE: 120 MG
     Route: 048
     Dates: start: 20080101
  2. ORLISTAT [Suspect]
     Route: 048
     Dates: start: 20081008
  3. ORLISTAT [Suspect]
     Route: 048
  4. ORLISTAT [Suspect]
     Route: 048
     Dates: start: 20090201
  5. SYNTHROID [Concomitant]
     Route: 048
     Dates: start: 19940101

REACTIONS (5)
  - GASTROOESOPHAGEAL REFLUX DISEASE [None]
  - HIATUS HERNIA [None]
  - SALIVARY GLAND MASS [None]
  - THERAPEUTIC RESPONSE DECREASED [None]
  - URINARY TRACT INFECTION [None]
